FAERS Safety Report 15042071 (Version 2)
Quarter: 2018Q2

REPORT INFORMATION
  Report Type: Spontaneous
  Country: US (occurrence: US)
  Receive Date: 20180621
  Receipt Date: 20180628
  Transmission Date: 20180711
  Serious: Yes (Other)
  Sender: FDA-Public Use
  Company Number: US-PFIZER INC-2018249126

PATIENT
  Age: 64 Year
  Sex: Female
  Weight: 65.77 kg

DRUGS (2)
  1. BENAZEPRIL [Concomitant]
     Active Substance: BENAZEPRIL HYDROCHLORIDE
     Indication: HYPERTENSION
     Dosage: 40 MG, 1X/DAY
  2. XELJANZ [Suspect]
     Active Substance: TOFACITINIB CITRATE
     Indication: RHEUMATOID ARTHRITIS
     Dosage: 5 MG, TABLET, TWICE A DAY (MORNING AND NIGHT)

REACTIONS (5)
  - Nerve injury [Unknown]
  - Herpes zoster [Not Recovered/Not Resolved]
  - Hypoaesthesia [Unknown]
  - Hypoaesthesia oral [Unknown]
  - Hypoaesthesia teeth [Unknown]

NARRATIVE: CASE EVENT DATE: 20180401
